FAERS Safety Report 11311437 (Version 7)
Quarter: 2019Q3

REPORT INFORMATION
  Report Type: Report from Study
  Country: US (occurrence: US)
  Receive Date: 20150727
  Receipt Date: 20190809
  Transmission Date: 20191004
  Serious: Yes (Hospitalization)
  Sender: FDA-Public Use
  Company Number: US-AMGEN-USASL2015073449

PATIENT
  Age: 42 Year
  Sex: Female
  Weight: 65.76 kg

DRUGS (3)
  1. ENBREL [Suspect]
     Active Substance: ETANERCEPT
     Dosage: 50 MILLIGRAM, QWK
     Route: 065
  2. ENBREL [Suspect]
     Active Substance: ETANERCEPT
     Indication: RHEUMATOID ARTHRITIS
     Dosage: 50 MILLIGRAM, QWK
     Route: 058
  3. PREDNISONE. [Concomitant]
     Active Substance: PREDNISONE
     Dosage: UNK

REACTIONS (17)
  - Pyrexia [Unknown]
  - Injection site induration [Unknown]
  - Renal pain [Unknown]
  - Injection site erythema [Unknown]
  - Injection site pruritus [Unknown]
  - Injection site pain [Unknown]
  - Injection site urticaria [Unknown]
  - Vomiting [Unknown]
  - Injection site nodule [Unknown]
  - Injection site swelling [Unknown]
  - Asthenia [Unknown]
  - Malaise [Unknown]
  - Urticaria [Unknown]
  - Injection site warmth [Unknown]
  - Animal bite [Unknown]
  - Injection site reaction [Unknown]
  - Contusion [Unknown]

NARRATIVE: CASE EVENT DATE: 2015
